FAERS Safety Report 8377255-4 (Version None)
Quarter: 2012Q2

REPORT INFORMATION
  Report Type: 
  Country: None (occurrence: None)
  Receive Date: 20120521
  Receipt Date: 20120508
  Transmission Date: 20120825
  Serious: Yes (Other)
  Sender: FDA-Public Use
  Company Number: 2010AP001742

PATIENT
  Age: 11 Year
  Sex: Female

DRUGS (3)
  1. ONDANSETRON HYDROCHLORIDE [Suspect]
     Indication: PROPHYLAXIS OF NAUSEA AND VOMITING
     Dosage: 0.1 MG/KG
  2. DEXAMETHASONE [Concomitant]
  3. DIMENHYDRINATE [Concomitant]

REACTIONS (6)
  - PROCEDURAL NAUSEA [None]
  - VENTRICULAR TACHYCARDIA [None]
  - RESPIRATORY ACIDOSIS [None]
  - PROCEDURAL VOMITING [None]
  - VENTRICULAR EXTRASYSTOLES [None]
  - ELECTROCARDIOGRAM QT PROLONGED [None]
